FAERS Safety Report 8545686-5 (Version None)
Quarter: 2012Q3

REPORT INFORMATION
  Report Type: 
  Country: None (occurrence: None)
  Receive Date: 20120727
  Receipt Date: 20120723
  Transmission Date: 20120928
  Serious: Yes (Other)
  Sender: FDA-Public Use
  Company Number: CHPA2012GB012672

PATIENT
  Age: 63 Year
  Sex: Female
  Weight: 85 kg

DRUGS (2)
  1. NICOTINE [Suspect]
     Indication: WITHDRAWAL SYNDROME
     Dosage: UNK, UNK
     Route: 048
  2. NICOTINE [Suspect]
     Dosage: 2 DF, QW
     Route: 048
     Dates: start: 20110101

REACTIONS (3)
  - NIGHT SWEATS [None]
  - IRRITABILITY [None]
  - NICOTINE DEPENDENCE [None]
